FAERS Safety Report 12853443 (Version 1)
Quarter: 2016Q4

REPORT INFORMATION
  Report Type: Spontaneous
  Country: SA (occurrence: SA)
  Receive Date: 20161017
  Receipt Date: 20161017
  Transmission Date: 20170207
  Serious: Yes (Hospitalization)
  Sender: FDA-Public Use
  Company Number: SA-ASTRAZENECA-2016SF08114

PATIENT
  Age: 65 Year
  Sex: Female

DRUGS (8)
  1. ONGLYZA [Suspect]
     Active Substance: SAXAGLIPTIN HYDROCHLORIDE
     Indication: TYPE 2 DIABETES MELLITUS
     Route: 048
  2. CO-DIOVAN [Concomitant]
     Active Substance: HYDROCHLOROTHIAZIDE\VALSARTAN
  3. NOVONORM [Concomitant]
     Active Substance: REPAGLINIDE
  4. AGIOLAX [Concomitant]
  5. DISFLATYL [Concomitant]
  6. LASIX [Concomitant]
     Active Substance: FUROSEMIDE
  7. ASPIRIN. [Concomitant]
     Active Substance: ASPIRIN
  8. CONCOR [Concomitant]
     Active Substance: BISOPROLOL FUMARATE

REACTIONS (1)
  - Atrioventricular block complete [Unknown]
